FAERS Safety Report 6432726-2 (Version None)
Quarter: 2009Q4

REPORT INFORMATION
  Report Type: 
  Country: None (occurrence: None)
  Receive Date: 20091109
  Receipt Date: 20091028
  Transmission Date: 20100525
  Serious: Yes (Life-Threatening, Hospitalization)
  Sender: FDA-Public Use
  Company Number: US-BAYER-200934162GPV

PATIENT
  Age: 78 Year
  Sex: Female
  Weight: 67 kg

DRUGS (20)
  1. ILOPROST [Suspect]
     Indication: DRUG USE FOR UNKNOWN INDICATION
     Route: 055
     Dates: start: 20090604
  2. ALEVE [Suspect]
     Indication: DRUG USE FOR UNKNOWN INDICATION
     Route: 048
     Dates: start: 20090201, end: 20090201
  3. BOSENTAN [Suspect]
     Indication: PULMONARY ARTERIAL HYPERTENSION
     Route: 048
     Dates: start: 20081118, end: 20090120
  4. BOSENTAN [Suspect]
     Route: 048
     Dates: start: 20090121, end: 20090527
  5. SILDENAFIL [Suspect]
     Indication: PULMONARY ARTERIAL HYPERTENSION
     Route: 048
     Dates: start: 20081001
  6. DILTIAZEM [Suspect]
     Indication: DRUG USE FOR UNKNOWN INDICATION
     Route: 042
     Dates: start: 20090803, end: 20090803
  7. DILTIAZEM [Suspect]
     Route: 048
     Dates: start: 20090803
  8. ASPIRIN [Concomitant]
     Route: 048
     Dates: start: 20020611
  9. ATORVASTATIN [Concomitant]
     Route: 048
     Dates: start: 20070301
  10. CALCIUM CITRATE [Concomitant]
     Route: 048
     Dates: start: 20020617
  11. ESTROPIPATE [Concomitant]
     Route: 048
     Dates: start: 20040426
  12. FUROSEMIDE [Concomitant]
     Route: 048
     Dates: start: 20071002
  13. LEVOTHYROXINE SODIUM [Concomitant]
     Route: 048
     Dates: start: 20070313
  14. MULTI-VITAMIN [Concomitant]
     Route: 048
     Dates: start: 20070301
  15. NIFEDIPINE [Concomitant]
     Route: 048
     Dates: start: 20070327
  16. OMEPRAZOLE [Concomitant]
     Route: 048
     Dates: start: 20030403
  17. OXYGEN [Concomitant]
     Route: 055
     Dates: start: 20071002
  18. POTASSIUM CHLORIDE [Concomitant]
     Route: 048
     Dates: start: 20080226
  19. METOPROLOL [Concomitant]
     Route: 048
     Dates: start: 20080220, end: 20090901
  20. METOPROLOL [Concomitant]
     Route: 048

REACTIONS (5)
  - BLOOD PRESSURE SYSTOLIC DECREASED [None]
  - PLEURAL EFFUSION [None]
  - PNEUMONIA [None]
  - RESPIRATORY FAILURE [None]
  - SEPSIS [None]
